FAERS Safety Report 9376361 (Version 1)
Quarter: 2013Q3

REPORT INFORMATION
  Report Type: Spontaneous
  Country: AT (occurrence: AT)
  Receive Date: 20130701
  Receipt Date: 20130701
  Transmission Date: 20140515
  Serious: Yes (Other)
  Sender: FDA-Public Use
  Company Number: AT-JNJFOC-20130612154

PATIENT
  Sex: Female

DRUGS (3)
  1. REMICADE [Suspect]
     Indication: CROHN^S DISEASE
     Dosage: SECOND INFUSION
     Route: 042
     Dates: start: 2013
  2. REMICADE [Suspect]
     Indication: CROHN^S DISEASE
     Dosage: FIRST INFUSION
     Route: 042
     Dates: start: 2013
  3. CORTISONE [Concomitant]
     Route: 065
     Dates: start: 2013

REACTIONS (3)
  - Angina pectoris [Unknown]
  - Infusion related reaction [Unknown]
  - Antibody test positive [Unknown]
